FAERS Safety Report 11176294 (Version 6)
Quarter: 2021Q3

REPORT INFORMATION
  Report Type: Report from Study
  Country: CA (occurrence: CA)
  Receive Date: 20150609
  Receipt Date: 20210715
  Transmission Date: 20211014
  Serious: Yes (Other)
  Sender: FDA-Public Use
  Company Number: PHHY2012CA097293

PATIENT
  Age: 52 Year
  Sex: Male

DRUGS (10)
  1. SANDOSTATIN LAR DEPOT [Suspect]
     Active Substance: OCTREOTIDE ACETATE
     Indication: ACROMEGALY
     Dosage: 20 MG, QMO (ONCE A MONTH)
     Route: 030
     Dates: start: 20120606
  2. SANDOSTATIN [Suspect]
     Active Substance: OCTREOTIDE ACETATE
  3. DOSTINEX [Concomitant]
     Active Substance: CABERGOLINE
     Indication: PRODUCT USED FOR UNKNOWN INDICATION
     Dosage: UNK
     Route: 065
  4. DDAVP [Concomitant]
     Active Substance: DESMOPRESSIN ACETATE
     Indication: PRODUCT USED FOR UNKNOWN INDICATION
     Dosage: UNK
     Route: 065
  5. SANDOSTATIN [Suspect]
     Active Substance: OCTREOTIDE ACETATE
  6. SANDOSTATIN LAR DEPOT [Suspect]
     Active Substance: OCTREOTIDE ACETATE
     Dosage: 30 MG, QMO
     Route: 030
  7. SANDOSTATIN [Suspect]
     Active Substance: OCTREOTIDE ACETATE
     Indication: ACROMEGALY
     Dosage: UNK FOR 5 DAYS
     Route: 058
     Dates: start: 201206, end: 201206
  8. SANDOSTATIN LAR DEPOT [Suspect]
     Active Substance: OCTREOTIDE ACETATE
     Dosage: 30 MG, QMO (ONCE A MONTH)
     Route: 030
  9. SANDOSTATIN LAR DEPOT [Suspect]
     Active Substance: OCTREOTIDE ACETATE
     Dosage: 30 MG, QMO (EVERY 4 WEEKS)
     Route: 030
  10. SANDOSTATIN LAR DEPOT [Suspect]
     Active Substance: OCTREOTIDE ACETATE
     Dosage: 20 MG, QMO (EVERY 4 WEEKS)
     Route: 030

REACTIONS (4)
  - Neoplasm [Unknown]
  - Blood pressure increased [Unknown]
  - Insulin-like growth factor increased [Not Recovered/Not Resolved]
  - Blood growth hormone increased [Unknown]

NARRATIVE: CASE EVENT DATE: 20161209
